FAERS Safety Report 14590155 (Version 1)
Quarter: 2018Q1

REPORT INFORMATION
  Report Type: Spontaneous
  Country: BE (occurrence: BE)
  Receive Date: 20180302
  Receipt Date: 20180302
  Transmission Date: 20180509
  Serious: Yes (Hospitalization, Disabling, Other)
  Sender: FDA-Public Use
  Company Number: BE-BRISTOL-MYERS SQUIBB COMPANY-BMS-2018-016634

PATIENT
  Age: 62 Year
  Sex: Female
  Weight: 40 kg

DRUGS (3)
  1. ASAFLOW [Concomitant]
     Active Substance: ASPIRIN
     Indication: PRODUCT USED FOR UNKNOWN INDICATION
     Route: 065
  2. HYDREA [Suspect]
     Active Substance: HYDROXYUREA
     Indication: POLYCYTHAEMIA VERA
     Dosage: 2 HALVES, QD
     Route: 048
     Dates: start: 201709
  3. LORAZEPAM. [Concomitant]
     Active Substance: LORAZEPAM
     Indication: PRODUCT USED FOR UNKNOWN INDICATION
     Dosage: 0.5 TAB, UNK
     Route: 065

REACTIONS (11)
  - Abdominal pain [Unknown]
  - Abdominal pain upper [Unknown]
  - Rash [Unknown]
  - Gastrointestinal disorder [Unknown]
  - Chest pain [Unknown]
  - Product use in unapproved indication [Unknown]
  - Arrhythmia [Unknown]
  - Pruritus [Unknown]
  - Pain of skin [Unknown]
  - Product use complaint [Unknown]
  - Wrong technique in product usage process [Unknown]

NARRATIVE: CASE EVENT DATE: 201709
